FAERS Safety Report 8030639-6 (Version None)
Quarter: 2012Q1

REPORT INFORMATION
  Report Type: 
  Country: None (occurrence: None)
  Receive Date: 20120105
  Receipt Date: 20111223
  Transmission Date: 20120608
  Serious: Yes (Hospitalization)
  Sender: FDA-Public Use
  Company Number: MIN-00823

PATIENT
  Age: 74 Year
  Sex: Female

DRUGS (1)
  1. MINOCYCLINE HYDROCHLORIDE [Suspect]
     Indication: RHEUMATOID ARTHRITIS

REACTIONS (2)
  - UPPER GASTROINTESTINAL HAEMORRHAGE [None]
  - SKIN DISCOLOURATION [None]
